FAERS Safety Report 16723343 (Version 1)
Quarter: 2019Q3

REPORT INFORMATION
  Report Type: Spontaneous
  Country: DE (occurrence: DE)
  Receive Date: 20190821
  Receipt Date: 20190821
  Transmission Date: 20191005
  Serious: Yes (Death, Other)
  Sender: FDA-Public Use
  Company Number: DE-IBIGEN-2019.07075

PATIENT
  Sex: Male
  Weight: 86 kg

DRUGS (3)
  1. AMPICILINA/SULBACTAM [Suspect]
     Active Substance: AMPICILLIN SODIUM\SULBACTAM SODIUM
     Indication: STREPTOCOCCAL SEPSIS
     Dosage: UNK
     Route: 065
  2. CEFTRIAXON HEXAL [Suspect]
     Active Substance: CEFTRIAXONE
     Indication: STREPTOCOCCAL INFECTION
     Dosage: UNK ()
     Route: 065
     Dates: start: 20190202
  3. MEROPENEM. [Suspect]
     Active Substance: MEROPENEM
     Indication: PRODUCT USED FOR UNKNOWN INDICATION
     Dosage: UNK ()
     Route: 065
     Dates: start: 20190201

REACTIONS (5)
  - Prostate cancer metastatic [Fatal]
  - Malignant neoplasm progression [Fatal]
  - Body temperature abnormal [Unknown]
  - Urinary tract obstruction [Unknown]
  - Acute respiratory failure [Fatal]

NARRATIVE: CASE EVENT DATE: 20190201
